FAERS Safety Report 11919752 (Version 1)
Quarter: 2016Q1

REPORT INFORMATION
  Report Type: Spontaneous
  Country: US (occurrence: US)
  Receive Date: 20160115
  Receipt Date: 20160115
  Transmission Date: 20160526
  Serious: Yes (Death)
  Sender: FDA-Public Use
  Company Number: US-ROCHE-1693107

PATIENT
  Age: 54 Year
  Sex: Female
  Weight: 77.11 kg

DRUGS (5)
  1. LIPITOR [Concomitant]
     Active Substance: ATORVASTATIN CALCIUM
     Indication: BLOOD PRESSURE MEASUREMENT
     Dosage: STARTED A COUPLE OF YEARS BEFORE STARTING THE QUETIAPINE FUMARATE.
     Route: 065
  2. KLONOPIN [Suspect]
     Active Substance: CLONAZEPAM
     Indication: TEMPORAL LOBE EPILEPSY
     Route: 048
     Dates: start: 2003
  3. TRAZODONE [Concomitant]
     Active Substance: TRAZODONE HYDROCHLORIDE
     Indication: PRODUCT USED FOR UNKNOWN INDICATION
     Dosage: UNKNOWN DIAGNOSIS, PRESCRIBED BY THE SAME MENTAL HEALTH DEPARTMENT TO GO WITH THE QUETIAPINE FUMARAT
     Route: 065
  4. METFORMIN [Concomitant]
     Active Substance: METFORMIN HYDROCHLORIDE
     Indication: DIABETES MELLITUS
     Dosage: STARTED BEFORE THE QUETIAPINE FUMARATE.
     Route: 065
  5. SEROQUEL [Suspect]
     Active Substance: QUETIAPINE FUMARATE
     Indication: BIPOLAR DISORDER
     Dosage: AT BED TIME, NDC NUMBER:003100272
     Route: 065

REACTIONS (3)
  - Mental disorder [Unknown]
  - Myocardial infarction [Fatal]
  - Feeling abnormal [Unknown]

NARRATIVE: CASE EVENT DATE: 20131205
